FAERS Safety Report 8453103-9 (Version None)
Quarter: 2012Q2

REPORT INFORMATION
  Report Type: 
  Country: None (occurrence: None)
  Receive Date: 20120620
  Receipt Date: 20120618
  Transmission Date: 20120825
  Serious: No
  Sender: FDA-Public Use
  Company Number: US-PFIZER INC-2012146973

PATIENT
  Sex: Female
  Weight: 63.492 kg

DRUGS (3)
  1. LYRICA [Suspect]
     Indication: NEURALGIA
     Dosage: 150 MG, 2X/DAY
     Route: 048
     Dates: start: 20120601
  2. LYRICA [Suspect]
     Dosage: 225 MG DAILY (75MG IN MORNING, 150 MG AT NIGHT)
     Route: 048
     Dates: start: 20120601
  3. OXYCODONE [Concomitant]
     Dosage: UNK

REACTIONS (3)
  - SENSORY DISTURBANCE [None]
  - HYPOAESTHESIA [None]
  - FEELING ABNORMAL [None]
